FAERS Safety Report 23046697 (Version 1)
Quarter: 2023Q4

REPORT INFORMATION
  Report Type: Report from Study
  Country: CA (occurrence: CA)
  Receive Date: 20231009
  Receipt Date: 20231009
  Transmission Date: 20240110
  Serious: Yes (Death)
  Sender: FDA-Public Use
  Company Number: CA-ABBVIE-5441693

PATIENT
  Sex: Male

DRUGS (1)
  1. LUPRON [Suspect]
     Active Substance: LEUPROLIDE ACETATE
     Indication: Prostate cancer
     Route: 030
     Dates: end: 2023

REACTIONS (3)
  - Sepsis [Fatal]
  - Pain [Fatal]
  - Internal haemorrhage [Fatal]

NARRATIVE: CASE EVENT DATE: 20230101
